FAERS Safety Report 19615273 (Version 3)
Quarter: 2021Q3

REPORT INFORMATION
  Report Type: Spontaneous
  Country: US (occurrence: US)
  Receive Date: 20210727
  Receipt Date: 20210811
  Transmission Date: 20211014
  Serious: No
  Sender: FDA-Public Use
  Company Number: US-PFIZER INC-2019302612

PATIENT
  Age: 76 Year
  Sex: Female

DRUGS (2)
  1. LYRICA [Suspect]
     Active Substance: PREGABALIN
     Dosage: 25 MG, 2X/DAY (1 CAPSULE TWICE A DAY 90 DAYS)
     Route: 048
  2. LYRICA [Suspect]
     Active Substance: PREGABALIN
     Indication: PARAESTHESIA
     Dosage: 25 MG, 1X/DAY (1 CAPSULE ONCE AT BEDTIME 30 DAYS)
     Route: 048

REACTIONS (2)
  - Limb discomfort [Unknown]
  - Pain in extremity [Unknown]
